FAERS Safety Report 14679605 (Version 1)
Quarter: 2018Q1

REPORT INFORMATION
  Report Type: Spontaneous
  Country: US (occurrence: US)
  Receive Date: 20180324
  Receipt Date: 20180324
  Transmission Date: 20180509
  Serious: Yes (Death)
  Sender: FDA-Public Use
  Company Number: None

PATIENT
  Age: 25 Year
  Sex: Female
  Weight: 61.23 kg

DRUGS (1)
  1. MIRENA [Suspect]
     Active Substance: LEVONORGESTREL

REACTIONS (5)
  - Pain [None]
  - Muscle spasms [None]
  - Device dislocation [None]
  - Abortion spontaneous [None]
  - Complication of device removal [None]

NARRATIVE: CASE EVENT DATE: 20130601
